FAERS Safety Report 20279836 (Version 2)
Quarter: 2022Q1

REPORT INFORMATION
  Report Type: Spontaneous
  Country: US (occurrence: US)
  Receive Date: 20220103
  Receipt Date: 20220105
  Transmission Date: 20220423
  Serious: No
  Sender: FDA-Public Use
  Company Number: US-JNJFOC-20211216800

PATIENT
  Age: 64 Year
  Sex: Male
  Weight: 82.628 kg

DRUGS (25)
  1. TREMFYA [Suspect]
     Active Substance: GUSELKUMAB
     Indication: Rheumatoid arthritis
     Route: 065
     Dates: start: 20211114
  2. TREMFYA [Suspect]
     Active Substance: GUSELKUMAB
     Indication: Psoriatic arthropathy
  3. LOSARTAN [Concomitant]
     Active Substance: LOSARTAN
     Indication: Hypertension
  4. METOPROLOL SUCCINATE [Concomitant]
     Active Substance: METOPROLOL SUCCINATE
     Indication: Hypertension
     Dosage: 1.5 ONE DAY
  5. ROSUVASTATIN [Concomitant]
     Active Substance: ROSUVASTATIN
     Indication: Hypercholesterolaemia
  6. OMEPRAZOLE [Concomitant]
     Active Substance: OMEPRAZOLE
     Indication: Gastrooesophageal reflux disease
  7. BACLOFEN [Concomitant]
     Active Substance: BACLOFEN
     Indication: Spinal fusion surgery
  8. ROBAXIN [Concomitant]
     Active Substance: METHOCARBAMOL
     Indication: Spinal fusion surgery
     Dosage: AS REQUIRED
  9. ROBAXIN [Concomitant]
     Active Substance: METHOCARBAMOL
     Indication: Arthritis
  10. MESALAMINE [Concomitant]
     Active Substance: MESALAMINE
     Indication: Arthritis
  11. MYCOPHENOLIC ACID [Concomitant]
     Active Substance: MYCOPHENOLIC ACID
     Indication: Arthritis
  12. HYDROXYCHLOROQUINE [Concomitant]
     Active Substance: HYDROXYCHLOROQUINE
     Indication: Arthritis
  13. SULFASALAZINE [Concomitant]
     Active Substance: SULFASALAZINE
     Indication: Arthritis
  14. PREDNISONE [Concomitant]
     Active Substance: PREDNISONE
     Indication: Arthralgia
     Dosage: AS REQUIRED
  15. MEDROL [Concomitant]
     Active Substance: METHYLPREDNISOLONE
     Indication: Arthralgia
     Dosage: AS REQUIRED
  16. LEVOTHYROXINE [Concomitant]
     Active Substance: LEVOTHYROXINE
     Indication: Hypothyroidism
  17. TOPIRAMATE [Concomitant]
     Active Substance: TOPIRAMATE
  18. ALENDRONATE [Concomitant]
     Active Substance: ALENDRONATE SODIUM
     Dosage: FOR BONE HEALTH
  19. ALLOPURINOL [Concomitant]
     Active Substance: ALLOPURINOL
     Indication: Gout
  20. PRAMIPEXOLE [Concomitant]
     Active Substance: PRAMIPEXOLE
     Indication: Neuralgia
  21. FOLIC ACID [Concomitant]
     Active Substance: FOLIC ACID
     Indication: Anaemia
  22. K PHOS NEUTRAL [Concomitant]
     Active Substance: POTASSIUM PHOSPHATE, MONOBASIC\SODIUM PHOSPHATE, DIBASIC, ANHYDROUS\SODIUM PHOSPHATE, MONOBASIC, MON
  23. POTASSIUM [Concomitant]
     Active Substance: POTASSIUM
  24. CYANOCOBALAMIN [Concomitant]
     Active Substance: CYANOCOBALAMIN
     Dosage: 1000 MICROGRAM
  25. ERGOCALCIFEROL [Concomitant]
     Active Substance: ERGOCALCIFEROL

REACTIONS (2)
  - Memory impairment [Unknown]
  - Herpes virus infection [Unknown]
